FAERS Safety Report 8939303 (Version 1)
Quarter: 2012Q4

REPORT INFORMATION
  Report Type: 
  Country: US (occurrence: US)
  Receive Date: 20121203
  Receipt Date: 20121203
  Transmission Date: 20130627
  Serious: Yes (Hospitalization, Other)
  Sender: FDA-Public Use
  Company Number: US-TEVA-372788USA

PATIENT
  Age: 8 Year
  Sex: Male
  Weight: 48 kg

DRUGS (5)
  1. ONDANSETRON [Suspect]
     Indication: INTENTIONAL OVERDOSE
     Dosage: 15 ondansetron 4-mg oral tablets (1.25 mg/kg)
     Route: 048
  2. ONDANSETRON [Suspect]
     Dosage: as needed
     Route: 048
  3. MERCAPTOPURINE [Concomitant]
     Dosage: 50mg daily
     Route: 048
  4. METHOTREXATE [Concomitant]
     Route: 048
  5. COTRIMOXAZOLE [Concomitant]
     Route: 048

REACTIONS (4)
  - Intentional overdose [Recovered/Resolved]
  - Poisoning deliberate [Recovered/Resolved]
  - Hypotension [Recovered/Resolved]
  - Anaemia macrocytic [Unknown]
